FAERS Safety Report 18247080 (Version 1)
Quarter: 2020Q3

REPORT INFORMATION
  Report Type: Spontaneous
  Country: US (occurrence: US)
  Receive Date: 20200909
  Receipt Date: 20200909
  Transmission Date: 20201103
  Serious: Yes (Life-Threatening, Other)
  Sender: FDA-Public Use
  Company Number: None

PATIENT
  Age: 58 Year
  Sex: Female
  Weight: 104.85 kg

DRUGS (1)
  1. LYRICA [Suspect]
     Active Substance: PREGABALIN
     Indication: FIBROMYALGIA
     Dosage: ?          QUANTITY:1 CAPSULE(S);?
     Dates: start: 20200908, end: 20200908

REACTIONS (15)
  - Dry throat [None]
  - Dysphemia [None]
  - Micturition disorder [None]
  - Constipation [None]
  - Loss of personal independence in daily activities [None]
  - Nervousness [None]
  - Vision blurred [None]
  - Tremor [None]
  - Insomnia [None]
  - Heart rate increased [None]
  - Eating disorder [None]
  - Abdominal discomfort [None]
  - Thinking abnormal [None]
  - Post-traumatic stress disorder [None]
  - Headache [None]

NARRATIVE: CASE EVENT DATE: 20200908
